FAERS Safety Report 11044470 (Version 4)
Quarter: 2015Q4

REPORT INFORMATION
  Report Type: Spontaneous
  Country: US (occurrence: US)
  Receive Date: 20150417
  Receipt Date: 20151228
  Transmission Date: 20160304
  Serious: Yes (Hospitalization)
  Sender: FDA-Public Use
  Company Number: US-BAYER-2015-137087

PATIENT
  Age: 43 Year
  Sex: Female
  Weight: 72.56 kg

DRUGS (18)
  1. HYDROCHLOROTHIAZIDE. [Concomitant]
     Active Substance: HYDROCHLOROTHIAZIDE
  2. OMEPRAZOLE. [Concomitant]
     Active Substance: OMEPRAZOLE
     Dosage: 20 MG DAILY
     Route: 048
  3. LISINOPRIL. [Concomitant]
     Active Substance: LISINOPRIL
  4. ATIVAN [Concomitant]
     Active Substance: LORAZEPAM
     Dosage: 1 MG, BID, AS NEEDED
     Route: 048
  5. VITAMIN D [Concomitant]
     Active Substance: CHOLECALCIFEROL
     Dosage: 50000 CAPSULE WEEKLY
     Route: 048
  6. LACTOBACILLUS ACIDOPHILUS\LACTOBACILLUS BULGARICUS [Concomitant]
     Active Substance: LACTOBACILLUS ACIDOPHILUS\LACTOBACILLUS DELBRUECKII SUBSP. BULGARICUS
     Dosage: UNK, BID
     Route: 048
  7. MIRENA [Suspect]
     Active Substance: LEVONORGESTREL
     Indication: CONTRACEPTION
     Dosage: 20 MCG/24HR, CONT
     Route: 015
     Dates: start: 200707
  8. KETOCONAZOLE. [Concomitant]
     Active Substance: KETOCONAZOLE
     Dosage: 200 MG, UNK
     Route: 048
     Dates: start: 20140701
  9. AMBIEN [Concomitant]
     Active Substance: ZOLPIDEM TARTRATE
     Dosage: 5 MG AT BEDTIME
     Route: 048
  10. AMLODIPINE BESYLATE. [Concomitant]
     Active Substance: AMLODIPINE BESYLATE
     Dosage: 5 MG DAILY
     Route: 048
  11. KETOCONAZOLE. [Concomitant]
     Active Substance: KETOCONAZOLE
     Dosage: 2 %, UNK
     Route: 061
     Dates: start: 20140701
  12. LORAZEPAM. [Concomitant]
     Active Substance: LORAZEPAM
  13. MIRENA [Suspect]
     Active Substance: LEVONORGESTREL
     Indication: CONTRACEPTION
     Dosage: 20 MCG/24HR, CONT
     Route: 015
     Dates: start: 20130617, end: 20140818
  14. PRAVASTATIN [Concomitant]
     Active Substance: PRAVASTATIN\PRAVASTATIN SODIUM
  15. MIRENA [Suspect]
     Active Substance: LEVONORGESTREL
     Indication: CONTRACEPTION
     Dosage: 20 MCG/24HR, CONT
     Route: 015
     Dates: start: 200102
  16. LIPITOR [Concomitant]
     Active Substance: ATORVASTATIN CALCIUM
  17. VITAMIN D3 [Concomitant]
     Active Substance: CHOLECALCIFEROL
     Dosage: UNK, QD
     Route: 048
  18. ESGIC-PLUS [Concomitant]
     Active Substance: ACETAMINOPHEN\BUTALBITAL\CAFFEINE
     Dosage: 50-500-40 EVERY 4 HOURS
     Route: 048

REACTIONS (7)
  - Menorrhagia [None]
  - Uterine perforation [None]
  - Device issue [None]
  - Anxiety [None]
  - Emotional distress [None]
  - Injury [None]
  - Abdominal pain [None]

NARRATIVE: CASE EVENT DATE: 2013
